FAERS Safety Report 9547916 (Version 1)
Quarter: 2013Q3

REPORT INFORMATION
  Report Type: Spontaneous
  Country: US (occurrence: US)
  Receive Date: 20130924
  Receipt Date: 20130924
  Transmission Date: 20140515
  Serious: Yes (Hospitalization, Other)
  Sender: FDA-Public Use
  Company Number: US-NAPPMUNDI-USA-2012-0081992

PATIENT
  Sex: Female

DRUGS (4)
  1. MORPHINE SULFATE (SIMILAR TO NDA 19-516) [Suspect]
     Indication: PAIN
     Dosage: UNK UNK, SEE TEXT
  2. OXYCODONE HCL IMMEDIATE RELEASE (91-490) [Suspect]
     Indication: PAIN
     Dosage: UNK UNK, SEE TEXT
  3. XANAX [Suspect]
     Indication: PAIN
     Dosage: UNK UNK, SEE TEXT
  4. METHADONE [Suspect]
     Indication: PAIN
     Dosage: UNK UNK, SEE TEXT

REACTIONS (3)
  - Overdose [Unknown]
  - Respiratory arrest [Unknown]
  - Drug dependence [Unknown]
